FAERS Safety Report 10084830 (Version 3)
Quarter: 2014Q2

REPORT INFORMATION
  Report Type: Spontaneous
  Country: CN (occurrence: CN)
  Receive Date: 20140417
  Receipt Date: 20140626
  Transmission Date: 20141212
  Serious: Yes (Life-Threatening, Hospitalization, Other)
  Sender: FDA-Public Use
  Company Number: CN-ELI_LILLY_AND_COMPANY-CN201404003351

PATIENT
  Sex: 0

DRUGS (1)
  1. HUMAN INSULIN (RDNA ORIGIN) 30REG70NPH [Suspect]
     Indication: PRODUCT USED FOR UNKNOWN INDICATION
     Dosage: UNK
     Route: 065
     Dates: start: 20131215, end: 20140409

REACTIONS (5)
  - Anaphylactic shock [Unknown]
  - Blood glucose increased [Unknown]
  - Pruritus [Unknown]
  - Injection site mass [Unknown]
  - Injection site discolouration [Unknown]
